FAERS Safety Report 8308230-3 (Version None)
Quarter: 2012Q2

REPORT INFORMATION
  Report Type: 
  Country: None (occurrence: None)
  Receive Date: 20120419
  Receipt Date: 20120403
  Transmission Date: 20120825
  Serious: Yes (Other)
  Sender: FDA-Public Use
  Company Number: FK201201072

PATIENT
  Age: 36 Year
  Sex: Female

DRUGS (14)
  1. FERROUS SULFATE TAB [Suspect]
     Indication: PRODUCT USED FOR UNKNOWN INDICATION
     Dosage: ORAL
     Route: 048
  2. BENDROFLUAZIDE (BENDROFLUAZIDE) [Concomitant]
  3. DIAZEPAM [Suspect]
     Indication: PRODUCT USED FOR UNKNOWN INDICATION
  4. ZOPICLONE (ZOPICLONE) (ZOPICLONE) [Suspect]
     Indication: PRODUCT USED FOR UNKNOWN INDICATION
  5. LANSOPRAZOLE [Suspect]
     Indication: PRODUCT USED FOR UNKNOWN INDICATION
  6. FOLIC ACID [Suspect]
     Indication: PRODUCT USED FOR UNKNOWN INDICATION
  7. PERINDOPRIL ERBUMINE [Suspect]
     Indication: PRODUCT USED FOR UNKNOWN INDICATION
  8. FUROSEMIDE [Concomitant]
  9. RAMIPRIL [Concomitant]
  10. ARIPIPRAZOLE [Concomitant]
  11. CLOZAPINE [Suspect]
     Indication: PRODUCT USED FOR UNKNOWN INDICATION
  12. TRIMETHOPRIM [Suspect]
     Indication: PRODUCT USED FOR UNKNOWN INDICATION
  13. ATORVASTATIN [Concomitant]
  14. LACTULOSE [Suspect]
     Indication: PRODUCT USED FOR UNKNOWN INDICATION

REACTIONS (20)
  - URINARY TRACT INFECTION [None]
  - SINUS TACHYCARDIA [None]
  - MALAISE [None]
  - PYREXIA [None]
  - PHYSICAL ASSAULT [None]
  - ABDOMINAL TENDERNESS [None]
  - HIATUS HERNIA [None]
  - CARDIAC MURMUR [None]
  - CONSTIPATION [None]
  - SKIN DISORDER [None]
  - DIABETES MELLITUS [None]
  - IRON DEFICIENCY ANAEMIA [None]
  - HAEMORRHAGE [None]
  - BODY MASS INDEX DECREASED [None]
  - STAPHYLOCOCCAL INFECTION [None]
  - THROMBOCYTOSIS [None]
  - NEUTROPHILIA [None]
  - WHITE BLOOD CELL COUNT INCREASED [None]
  - TREATMENT NONCOMPLIANCE [None]
  - MONOCYTE COUNT INCREASED [None]
